FAERS Safety Report 16976290 (Version 1)
Quarter: 2019Q4

REPORT INFORMATION
  Report Type: Spontaneous
  Country: US (occurrence: US)
  Receive Date: 20191030
  Receipt Date: 20191030
  Transmission Date: 20200122
  Serious: Yes (Other)
  Sender: FDA-Public Use
  Company Number: PHHY2018US131039

PATIENT
  Age: 38 Year
  Sex: Male

DRUGS (1)
  1. EVEROLIMUS. [Suspect]
     Active Substance: EVEROLIMUS
     Indication: KIDNEY ANGIOMYOLIPOMA
     Dosage: UNK
     Route: 065
     Dates: start: 201501

REACTIONS (2)
  - Kidney angiomyolipoma [Unknown]
  - Malignant neoplasm progression [Unknown]
